FAERS Safety Report 12933788 (Version 2)
Quarter: 2017Q1

REPORT INFORMATION
  Report Type: Spontaneous
  Country: US (occurrence: US)
  Receive Date: 20161111
  Receipt Date: 20170116
  Transmission Date: 20170428
  Serious: No
  Sender: FDA-Public Use
  Company Number: US-PFIZER INC-2016517465

PATIENT
  Age: 27 Year
  Sex: Male

DRUGS (12)
  1. KEPPRA [Concomitant]
     Active Substance: LEVETIRACETAM
     Dosage: UNK
  2. ZONEGRAN [Concomitant]
     Active Substance: ZONISAMIDE
     Dosage: UNK
  3. TEMODAR [Suspect]
     Active Substance: TEMOZOLOMIDE
     Indication: CHEMOTHERAPY
     Dosage: UNK
  4. LORAZEPAM. [Concomitant]
     Active Substance: LORAZEPAM
     Dosage: UNK UNK, AS NEEDED
     Dates: start: 201603
  5. VIMPAT [Concomitant]
     Active Substance: LACOSAMIDE
     Dosage: UNK
  6. ONFI [Suspect]
     Active Substance: CLOBAZAM
     Indication: SIMPLE PARTIAL SEIZURES
  7. ONFI [Suspect]
     Active Substance: CLOBAZAM
     Indication: PARTIAL SEIZURES
  8. DILANTIN [Suspect]
     Active Substance: PHENYTOIN
     Indication: EPILEPSY
     Dosage: UNK
  9. CLONAZEPAM. [Concomitant]
     Active Substance: CLONAZEPAM
     Indication: SIMPLE PARTIAL SEIZURES
     Dosage: 40 MG, DAILY
     Dates: start: 201603
  10. ONFI [Suspect]
     Active Substance: CLOBAZAM
     Indication: EPILEPSY
     Dosage: 10 MG, DAILY
     Dates: start: 201603
  11. ONFI [Suspect]
     Active Substance: CLOBAZAM
     Indication: NEOPLASM
     Dosage: 40 MG DAILY(20 MG AM,20 MG PM)
     Dates: start: 201603
  12. CLONAZEPAM. [Concomitant]
     Active Substance: CLONAZEPAM
     Indication: EPILEPSY
     Dosage: 10 MG, DAILY

REACTIONS (8)
  - Dysarthria [Unknown]
  - Toxicity to various agents [Recovering/Resolving]
  - Ataxia [Unknown]
  - Somnolence [Unknown]
  - Muscular weakness [Unknown]
  - Fall [Unknown]
  - Arthropathy [Unknown]
  - Drug effect incomplete [Unknown]
